APPROVED DRUG PRODUCT: TOBRAMYCIN
Active Ingredient: TOBRAMYCIN
Strength: 300MG/5ML
Dosage Form/Route: SOLUTION;INHALATION
Application: A209554 | Product #001
Applicant: PHARMOBEDIENT CONSULTING LLC
Approved: Oct 13, 2017 | RLD: No | RS: No | Type: DISCN